FAERS Safety Report 5577712-X (Version None)
Quarter: 2007Q4

REPORT INFORMATION
  Report Type: 
  Country: None (occurrence: None)
  Receive Date: 20071227
  Receipt Date: 20071212
  Transmission Date: 20080405
  Serious: Yes (Life-Threatening, Hospitalization)
  Sender: FDA-Public Use
  Company Number: 2005136072

PATIENT
  Age: 74 Year
  Sex: Male

DRUGS (14)
  1. MACUGEN [Suspect]
     Indication: CHOROIDAL NEOVASCULARISATION
     Dosage: 0.3 MG, 1 IN 6 WK, INTRAOCULAR
     Route: 031
     Dates: start: 20050901, end: 20050901
  2. QUIXIN [Suspect]
     Indication: PROPHYLAXIS
     Dosage: TOPICAL
     Route: 061
     Dates: start: 20050922
  3. LIDOCAINE AND EPINEPHRINE [Suspect]
     Indication: ANAESTHESIA
     Dosage: TOPICAL
     Route: 061
     Dates: start: 20050922
  4. LISINOPRIL [Concomitant]
  5. METFORMIN (METFORMIN) [Concomitant]
  6. DILTIAZEM [Concomitant]
  7. GLYBURIDE [Concomitant]
  8. FUROSEMIDE [Concomitant]
  9. ZOCOR [Concomitant]
  10. OXYBUTYNIN CHLORIDE [Concomitant]
  11. RABEPRAZOLE SODIUM [Concomitant]
  12. PERCOCET [Concomitant]
  13. TERAZOSIN HCL [Concomitant]
  14. TOBRADEX [Concomitant]

REACTIONS (5)
  - ANAPHYLACTIC SHOCK [None]
  - ANGIOEDEMA [None]
  - HYPERTENSION [None]
  - NO THERAPEUTIC RESPONSE [None]
  - RESPIRATORY DISTRESS [None]
